FAERS Safety Report 9942442 (Version 1)
Quarter: 2014Q1

REPORT INFORMATION
  Report Type: Spontaneous
  Country: DE (occurrence: DE)
  Receive Date: 20140303
  Receipt Date: 20140303
  Transmission Date: 20141002
  Serious: Yes (Other)
  Sender: FDA-Public Use
  Company Number: DE-ACTAVIS-2014-03182

PATIENT
  Age: 52 Year
  Sex: Male
  Weight: 100 kg

DRUGS (3)
  1. DOCETAXEL (UNKNOWN) [Suspect]
     Indication: SARCOMA METASTATIC
     Dosage: 100 MG/M*
     Route: 042
     Dates: start: 20140122, end: 20140122
  2. GEMCITABINE (UNKNOWN) [Suspect]
     Indication: SARCOMA METASTATIC
     Dosage: 900 MG/M*
     Route: 042
     Dates: start: 20140115, end: 20140115
  3. GEMCITABINE (UNKNOWN) [Suspect]
     Dosage: 900 MG/M*
     Route: 042
     Dates: start: 20140122, end: 20140122

REACTIONS (2)
  - Venous occlusion [Recovered/Resolved with Sequelae]
  - Visual impairment [Recovered/Resolved with Sequelae]
